FAERS Safety Report 9301951 (Version 1)
Quarter: 2013Q2

REPORT INFORMATION
  Report Type: Spontaneous
  Country: JP (occurrence: JP)
  Receive Date: 20130521
  Receipt Date: 20130521
  Transmission Date: 20140414
  Serious: Yes (Other)
  Sender: FDA-Public Use
  Company Number: JP-MYLANLABS-2013S1010333

PATIENT
  Age: 73 Year
  Sex: Male
  Weight: 59 kg

DRUGS (3)
  1. BEVACIZUMAB [Suspect]
     Indication: LUNG CARCINOMA CELL TYPE UNSPECIFIED STAGE IV
     Dosage: 15 MG/KG ON DAY 1 EVERY 4 WEEKS
     Route: 065
  2. PACLITAXEL [Suspect]
     Indication: LUNG CARCINOMA CELL TYPE UNSPECIFIED STAGE IV
     Dosage: 80 MG/M2/DAY ON DAYS 1, 8 AND 15 EVERY 4 WEEKS
     Route: 065
  3. CARBOPLATIN [Suspect]
     Indication: LUNG CARCINOMA CELL TYPE UNSPECIFIED STAGE IV
     Dosage: AUC 6, ON DAY 1 EVERY 4 WEEKS
     Route: 065

REACTIONS (1)
  - Pneumothorax [Recovered/Resolved]
